FAERS Safety Report 8716307 (Version 3)
Quarter: 2012Q4

REPORT INFORMATION
  Report Type: 
  Country: US (occurrence: US)
  Receive Date: 20120810
  Receipt Date: 20121220
  Transmission Date: 20130627
  Serious: Yes (Life-Threatening, Hospitalization)
  Sender: FDA-Public Use
  Company Number: US-MERCK-1208USA002410

PATIENT
  Age: 61 Year
  Sex: Female
  Weight: 42.3 kg

DRUGS (12)
  1. VORINOSTAT [Suspect]
     Indication: DIFFUSE LARGE B-CELL LYMPHOMA
     Dosage: 300 mg, qd on days 1-5
     Route: 048
     Dates: start: 20120716, end: 20120720
  2. VORINOSTAT [Suspect]
     Dosage: 400 mg, qd on days 1-5
     Route: 048
     Dates: start: 20121008, end: 20121012
  3. RITUXIMAB [Suspect]
     Indication: DIFFUSE LARGE B-CELL LYMPHOMA
     Dosage: 375 mg/m2, on day 3
     Route: 042
     Dates: start: 20120718, end: 20120718
  4. RITUXIMAB [Suspect]
     Dosage: 375 mg/m2, on day 3
     Route: 042
     Dates: start: 20121010, end: 20121010
  5. CYCLOPHOSPHAMIDE [Suspect]
     Indication: DIFFUSE LARGE B-CELL LYMPHOMA
     Dosage: 750 mg/m2, over 30-60miutes on day 3
     Route: 042
     Dates: start: 20120718, end: 20120718
  6. CYCLOPHOSPHAMIDE [Suspect]
     Dosage: 750 mg/m2, over 30-60 minutes on day 3
     Route: 042
     Dates: start: 20121010, end: 20121010
  7. DOXORUBICIN [Suspect]
     Indication: DIFFUSE LARGE B-CELL LYMPHOMA
     Dosage: 50 mg/m2,on day 3
     Route: 042
     Dates: start: 20120718, end: 20120718
  8. DOXORUBICIN [Suspect]
     Dosage: 50 mg/m2, on day 3
     Route: 042
     Dates: start: 20121010, end: 20121010
  9. VINCRISTINE [Suspect]
     Indication: DIFFUSE LARGE B-CELL LYMPHOMA
     Dosage: 1.40 mg/m2, on day 3
     Route: 042
     Dates: start: 20120718, end: 20120718
  10. VINCRISTINE [Suspect]
     Dosage: 1.40 mg/m2, on day 3
     Route: 042
     Dates: start: 20121010, end: 20121010
  11. PREDNISOLONE [Suspect]
     Indication: DIFFUSE LARGE B-CELL LYMPHOMA
     Dosage: 100 mg, qd
     Route: 048
     Dates: start: 20120718, end: 20120722
  12. PREDNISOLONE [Suspect]
     Dosage: 100 mg, qd
     Route: 048
     Dates: start: 20121010, end: 20121017

REACTIONS (6)
  - Febrile neutropenia [Recovered/Resolved]
  - Neutrophil count decreased [Unknown]
  - Platelet count decreased [Not Recovered/Not Resolved]
  - White blood cell count decreased [Unknown]
  - Cognitive disorder [Not Recovered/Not Resolved]
  - Febrile neutropenia [Not Recovered/Not Resolved]
